FAERS Safety Report 9474642 (Version 2)
Quarter: 2013Q4

REPORT INFORMATION
  Report Type: Spontaneous
  Country: US (occurrence: US)
  Receive Date: 20130823
  Receipt Date: 20131003
  Transmission Date: 20140711
  Serious: No
  Sender: FDA-Public Use
  Company Number: US-009507513-1308USA009448

PATIENT
  Age: 37 Year
  Sex: Female
  Weight: 121.1 kg

DRUGS (2)
  1. NEXPLANON [Suspect]
     Dosage: 1 ROD
     Route: 059
     Dates: start: 20130816, end: 20130816
  2. NEXPLANON [Suspect]
     Dosage: 1 DF, RIGHT ARM
     Route: 059
     Dates: start: 20130816

REACTIONS (3)
  - Device difficult to use [Recovered/Resolved]
  - No adverse event [Unknown]
  - Product quality issue [Unknown]
